FAERS Safety Report 19477716 (Version 1)
Quarter: 2021Q2

REPORT INFORMATION
  Report Type: Spontaneous
  Country: US (occurrence: US)
  Receive Date: 20210630
  Receipt Date: 20210630
  Transmission Date: 20210717
  Serious: No
  Sender: FDA-Public Use
  Company Number: None

PATIENT
  Age: 53 Year
  Sex: Male
  Weight: 108 kg

DRUGS (1)
  1. LENALIDOMIDE (LENALIDOMIDE 15MG CAP , ORAL) [Suspect]
     Active Substance: LENALIDOMIDE
     Indication: PULMONARY EMBOLISM
     Route: 048
     Dates: start: 20191223, end: 20210422

REACTIONS (6)
  - Pneumonitis [None]
  - Arthralgia [None]
  - Pulmonary embolism [None]
  - Deep vein thrombosis [None]
  - Neuropathy peripheral [None]
  - Atrial fibrillation [None]

NARRATIVE: CASE EVENT DATE: 20210421
